FAERS Safety Report 5132929-3 (Version None)
Quarter: 2006Q4

REPORT INFORMATION
  Report Type: 
  Country: None (occurrence: None)
  Receive Date: 20061019
  Receipt Date: 20061019
  Transmission Date: 20070319
  Serious: Yes (Other)
  Sender: FDA-Public Use
  Company Number: None

PATIENT
  Age: 37 Year
  Sex: Female
  Weight: 104.3273 kg

DRUGS (1)
  1. IMITREX [Suspect]
     Indication: MIGRAINE
     Dosage: 100MG ONCE PO
     Route: 048
     Dates: start: 20061006, end: 20061006

REACTIONS (3)
  - DYSARTHRIA [None]
  - MUSCLE TIGHTNESS [None]
  - SPEECH DISORDER [None]
